FAERS Safety Report 8109863-X (Version None)
Quarter: 2012Q1

REPORT INFORMATION
  Report Type: 
  Country: None (occurrence: None)
  Receive Date: 20120202
  Receipt Date: 20120120
  Transmission Date: 20120608
  Serious: No
  Sender: FDA-Public Use
  Company Number: US-AMGEN-USASP2012004375

PATIENT
  Age: 74 Year
  Sex: Female

DRUGS (3)
  1. ENBREL [Suspect]
     Indication: PSORIASIS
     Dosage: 50 MG, QWK
     Dates: start: 20111103
  2. PLAQUENIL [Concomitant]
     Dosage: 2 MG, QD
     Dates: start: 20070101
  3. METHOTREXATE [Concomitant]
     Dosage: UNK
     Dates: start: 20070101

REACTIONS (1)
  - PSORIASIS [None]
